FAERS Safety Report 4979629-8 (Version None)
Quarter: 2006Q2

REPORT INFORMATION
  Report Type: 
  Country: None (occurrence: None)
  Receive Date: 20060418
  Receipt Date: 20060331
  Transmission Date: 20061013
  Serious: Yes (Death, Other)
  Sender: FDA-Public Use
  Company Number: JP200602000553

PATIENT
  Age: 79 Year
  Sex: Male
  Weight: 53.4 kg

DRUGS (5)
  1. GEMZAR [Suspect]
     Indication: PANCREATIC CARCINOMA
     Dosage: SEE IMAGE
     Route: 042
     Dates: start: 20050321, end: 20050613
  2. GEMZAR [Suspect]
     Indication: PANCREATIC CARCINOMA
     Dosage: SEE IMAGE
     Route: 042
     Dates: start: 20050620, end: 20050725
  3. THERAPEUTIC RADIOPHARMACEUTICALS [Concomitant]
  4. URSO (UROSODEOXYCHOLIC ACID) TABLET [Concomitant]
  5. FLUITRAN (TRICHLORMETHIAZIDE) TABLET [Concomitant]

REACTIONS (8)
  - AMMONIA INCREASED [None]
  - BLOOD UREA INCREASED [None]
  - DEPRESSED LEVEL OF CONSCIOUSNESS [None]
  - HEPATIC FAILURE [None]
  - HEPATIC NECROSIS [None]
  - LIVER DISORDER [None]
  - MELAENA [None]
  - PLATELET COUNT DECREASED [None]
